FAERS Safety Report 9120683 (Version 6)
Quarter: 2014Q2

REPORT INFORMATION
  Report Type: Spontaneous
  Country: US (occurrence: US)
  Receive Date: 20130226
  Receipt Date: 20140408
  Transmission Date: 20141212
  Serious: Yes (Hospitalization, Other)
  Sender: FDA-Public Use
  Company Number: US-009507513-1302USA012148

PATIENT
  Sex: Female
  Weight: 81.63 kg

DRUGS (2)
  1. FOSAMAX [Suspect]
     Indication: OSTEOPOROSIS
     Dosage: 70 MG, UNK
     Route: 048
     Dates: start: 200212, end: 200804
  2. ALENDRONATE SODIUM [Suspect]
     Indication: OSTEOPOROSIS
     Dosage: 70 MG, UNK
     Route: 048
     Dates: start: 200805, end: 2010

REACTIONS (32)
  - Intramedullary rod insertion [Unknown]
  - Intramedullary rod insertion [Recovered/Resolved]
  - Femur fracture [Unknown]
  - Femur fracture [Recovered/Resolved]
  - Fall [Unknown]
  - Low turnover osteopathy [Unknown]
  - Glucose tolerance impaired [Unknown]
  - Bone loss [Unknown]
  - Arthroscopy [Unknown]
  - Fall [Unknown]
  - Spondylolisthesis [Unknown]
  - Tendonitis [Unknown]
  - Balance disorder [Unknown]
  - Sleep disorder [Unknown]
  - Pneumonia [Unknown]
  - Tuberculosis [Unknown]
  - Limb asymmetry [Unknown]
  - Type 2 diabetes mellitus [Unknown]
  - Hyperlipidaemia [Unknown]
  - Sleep apnoea syndrome [Unknown]
  - Chronic obstructive pulmonary disease [Not Recovered/Not Resolved]
  - Arthroscopy [Unknown]
  - Anaemia postoperative [Unknown]
  - Incision site erythema [Unknown]
  - Incisional drainage [Unknown]
  - Osteoarthritis [Unknown]
  - Pruritus [Unknown]
  - Nausea [Unknown]
  - Arthralgia [Not Recovered/Not Resolved]
  - Arthralgia [Unknown]
  - Arthralgia [Unknown]
  - Diarrhoea [Not Recovered/Not Resolved]
